FAERS Safety Report 19801239 (Version 2)
Quarter: 2022Q1

REPORT INFORMATION
  Report Type: Spontaneous
  Country: US (occurrence: US)
  Receive Date: 20210908
  Receipt Date: 20220308
  Transmission Date: 20220423
  Serious: Yes (Other)
  Sender: FDA-Public Use
  Company Number: US-GILEAD-2021-0547328

PATIENT
  Age: 49 Year
  Sex: Male
  Weight: 115.19 kg

DRUGS (11)
  1. VIREAD [Suspect]
     Active Substance: TENOFOVIR DISOPROXIL FUMARATE
     Indication: Product used for unknown indication
     Dosage: UNK
     Route: 048
     Dates: start: 2001
  2. VIREAD [Suspect]
     Active Substance: TENOFOVIR DISOPROXIL FUMARATE
     Dosage: UNK
     Route: 048
     Dates: start: 200208, end: 202010
  3. BIKTARVY [Concomitant]
     Active Substance: BICTEGRAVIR SODIUM\EMTRICITABINE\TENOFOVIR ALAFENAMIDE FUMARATE
  4. EPIVIR [Concomitant]
     Active Substance: LAMIVUDINE
  5. NORVIR [Concomitant]
     Active Substance: RITONAVIR
  6. PREZCOBIX [Concomitant]
     Active Substance: COBICISTAT\DARUNAVIR ETHANOLATE
  7. RETROVIR [Concomitant]
     Active Substance: ZIDOVUDINE
  8. REYATAZ [Concomitant]
     Active Substance: ATAZANAVIR SULFATE
  9. VIRAMUNE [Concomitant]
     Active Substance: NEVIRAPINE
  10. VIRAMUNE XR [Concomitant]
     Active Substance: NEVIRAPINE
  11. PANTOPRAZOLE [Concomitant]
     Active Substance: PANTOPRAZOLE

REACTIONS (10)
  - Osteoporosis [Not Recovered/Not Resolved]
  - Multiple fractures [Unknown]
  - Emotional distress [Not Recovered/Not Resolved]
  - Anhedonia [Not Recovered/Not Resolved]
  - Rib fracture [Unknown]
  - Hand fracture [Unknown]
  - Foot fracture [Unknown]
  - Bone density decreased [Unknown]
  - Anxiety [Not Recovered/Not Resolved]
  - Pain [Not Recovered/Not Resolved]

NARRATIVE: CASE EVENT DATE: 20200228
